FAERS Safety Report 24550416 (Version 1)
Quarter: 2024Q4

REPORT INFORMATION
  Report Type: Report from Study
  Country: CA (occurrence: CA)
  Receive Date: 20241025
  Receipt Date: 20241025
  Transmission Date: 20250115
  Serious: Yes (Other)
  Sender: JOHNSON AND JOHNSON
  Company Number: CA-JNJFOC-20241070070

PATIENT
  Age: 60 Year
  Sex: Male

DRUGS (5)
  1. REMICADE [Suspect]
     Active Substance: INFLIXIMAB
     Indication: Crohn^s disease
     Route: 041
     Dates: start: 20151021
  2. METHOTREXATE [Concomitant]
     Active Substance: METHOTREXATE
     Dosage: 5MG 3X/WEEK
  3. FOLIC ACID [Concomitant]
     Active Substance: FOLIC ACID
     Dosage: 3X/WEEK
  4. PINAVERIUM BROMIDE [Concomitant]
     Active Substance: PINAVERIUM BROMIDE
     Dosage: 100MG BID
  5. ROSUVASTATIN [Concomitant]
     Active Substance: ROSUVASTATIN

REACTIONS (3)
  - Localised infection [Recovering/Resolving]
  - Anal fistula [Recovering/Resolving]
  - Diarrhoea [Unknown]

NARRATIVE: CASE EVENT DATE: 20240917
